FAERS Safety Report 25908592 (Version 2)
Quarter: 2025Q4

REPORT INFORMATION
  Report Type: Spontaneous
  Country: EU (occurrence: EU)
  Receive Date: 20251010
  Receipt Date: 20251121
  Transmission Date: 20260118
  Serious: Yes (Life-Threatening)
  Sender: MERCK SHARP & DOHME LLC
  Company Number: None

PATIENT
  Age: 48 Year
  Sex: Female
  Weight: 100 kg

DRUGS (6)
  1. BRIDION [Suspect]
     Active Substance: SUGAMMADEX SODIUM
     Indication: General anaesthesia
     Route: 042
     Dates: start: 20250905, end: 20250905
  2. ROCURONIUM BROMIDE [Suspect]
     Active Substance: ROCURONIUM BROMIDE
     Indication: General anaesthesia
     Route: 042
     Dates: start: 20250905, end: 20250905
  3. ESKETAMINE [Suspect]
     Active Substance: ESKETAMINE
     Indication: General anaesthesia
     Route: 042
     Dates: start: 20250905, end: 20250905
  4. LIDOCAINE HYDROCHLORIDE [Suspect]
     Active Substance: LIDOCAINE HYDROCHLORIDE
     Indication: General anaesthesia
     Route: 042
     Dates: start: 20250905, end: 20250905
  5. SUFENTANIL CITRATE [Suspect]
     Active Substance: SUFENTANIL CITRATE
     Indication: General anaesthesia
     Route: 042
     Dates: start: 20250905, end: 20250905
  6. PROPOFOL [Concomitant]
     Active Substance: PROPOFOL
     Indication: General anaesthesia
     Dates: start: 20250905, end: 20250905

REACTIONS (1)
  - Anaphylactic shock [Recovered/Resolved]

NARRATIVE: CASE EVENT DATE: 20250905
